FAERS Safety Report 8126770 (Version 6)
Quarter: 2013Q4

REPORT INFORMATION
  Report Type: Report from Study
  Country: DE (occurrence: DE)
  Receive Date: 20110908
  Receipt Date: 20131206
  Transmission Date: 20140711
  Serious: Yes (Death, Hospitalization)
  Sender: FDA-Public Use
  Company Number: DE-BRISTOL-MYERS SQUIBB COMPANY-16027278

PATIENT
  Age: 52 Year
  Sex: Male
  Weight: 94 kg

DRUGS (9)
  1. IPILIMUMAB [Suspect]
     Indication: MALIGNANT MELANOMA
     Route: 042
     Dates: start: 20110712, end: 20110802
  2. HALDOL [Concomitant]
     Indication: DIZZINESS
     Dosage: ALSO TAKEN AS CONMED
     Route: 048
     Dates: start: 20110908, end: 20110908
  3. DIFLUCAN [Concomitant]
     Route: 048
     Dates: start: 20110908, end: 20110908
  4. APREPITANT [Concomitant]
     Indication: NAUSEA
     Route: 048
     Dates: start: 20110908, end: 20110908
  5. DIAZEPAM [Concomitant]
     Indication: FEAR
     Route: 042
     Dates: start: 20110908, end: 20110908
  6. PASPERTIN [Concomitant]
     Indication: NAUSEA
     Route: 042
     Dates: start: 20110910, end: 20110911
  7. MELPERONE HCL [Concomitant]
     Indication: FEAR
     Route: 042
     Dates: start: 20110908, end: 20110908
  8. FORTECORTIN [Concomitant]
     Indication: NAUSEA
     Route: 042
     Dates: start: 20110908, end: 20110911
  9. FRAGMIN [Concomitant]
     Indication: THROMBOSIS PROPHYLAXIS
     Dosage: 5000 MIO.I.E
     Route: 058
     Dates: start: 20110908, end: 20110911

REACTIONS (2)
  - Malignant neoplasm progression [Fatal]
  - Dizziness [Unknown]
